FAERS Safety Report 9234698 (Version 2)
Quarter: 2013Q2

REPORT INFORMATION
  Report Type: Spontaneous
  Country: JP (occurrence: JP)
  Receive Date: 20130416
  Receipt Date: 20130617
  Transmission Date: 20140414
  Serious: Yes (Death, Life-Threatening, Hospitalization)
  Sender: FDA-Public Use
  Company Number: JP-AMGEN-JPNSP2013016876

PATIENT
  Age: 73 Year
  Sex: Female
  Weight: 40 kg

DRUGS (27)
  1. AMG 761 [Suspect]
     Indication: ADULT T-CELL LYMPHOMA/LEUKAEMIA
     Dosage: 1 MG/KG, QD
     Route: 041
     Dates: start: 20121214, end: 20130215
  2. GRAN [Concomitant]
     Indication: FEBRILE NEUTROPENIA
     Dosage: 75 MUG, UNK
     Route: 065
  3. FIRSTCIN [Suspect]
     Indication: ANTIEMETIC SUPPORTIVE CARE
     Dosage: 4 G, TID
     Route: 065
     Dates: start: 20121225, end: 20130111
  4. FIRSTCIN [Suspect]
     Indication: FEBRILE NEUTROPENIA
  5. ACETAMINOPHEN [Concomitant]
     Dosage: UNK
     Dates: start: 20121214, end: 20130215
  6. CHLORPHENAMIMINE MALEATE [Concomitant]
     Dosage: UNK
     Dates: start: 20121214, end: 20130215
  7. METHYLPREDNISOLONE SODIUM SUCCINATE [Concomitant]
     Dosage: UNK
     Dates: start: 20121214, end: 20130215
  8. METHYCOBAL [Concomitant]
     Dosage: UNK
     Route: 048
     Dates: start: 20120828, end: 20130225
  9. BAKTAR [Concomitant]
     Dosage: UNK
     Route: 048
     Dates: start: 20120828, end: 20130225
  10. NEUQUINON [Concomitant]
     Dosage: UNK
     Route: 048
     Dates: start: 20120828, end: 20130225
  11. NEXIUM                             /01479302/ [Concomitant]
     Dosage: UNK
     Route: 048
     Dates: start: 20130117, end: 20130225
  12. NEUTROGIN [Concomitant]
     Dosage: UNK
     Dates: start: 20120906, end: 20130218
  13. WYSTAL [Concomitant]
     Dosage: UNK
     Dates: start: 20121210, end: 20121220
  14. RASURITEK [Concomitant]
     Indication: TUMOUR LYSIS SYNDROME
     Dosage: UNK
     Dates: start: 20121213, end: 20121217
  15. MEROPENEM [Concomitant]
     Dosage: UNK
     Dates: start: 20130218, end: 20130301
  16. ETOPOSIDE [Concomitant]
     Dosage: UNK
     Dates: start: 20121212, end: 20130208
  17. OMEPRAL                            /00661201/ [Concomitant]
     Dosage: UNK
     Route: 048
     Dates: start: 20120821, end: 20130116
  18. ADRIACIN [Concomitant]
     Dosage: UNK
     Dates: start: 20120828, end: 20121022
  19. VALTREX [Concomitant]
     Dosage: UNK
     Route: 048
     Dates: start: 20121217, end: 20121221
  20. FUNGIZONE [Concomitant]
     Dosage: UNK
     Dates: start: 20010222, end: 20130324
  21. BLOPRESS [Concomitant]
     Dosage: UNK
     Route: 048
     Dates: end: 20130107
  22. PREDNISOLONE [Concomitant]
     Dosage: UNK
     Route: 048
  23. NASEA-OD [Concomitant]
     Dosage: UNK
     Route: 048
  24. PREDONINE                          /00016201/ [Concomitant]
     Dosage: UNK
     Route: 048
  25. CALONAL [Concomitant]
     Dosage: UNK
     Route: 048
  26. EMEND                              /01627301/ [Concomitant]
     Dosage: UNK
     Route: 048
  27. POLARAMINE [Concomitant]
     Dosage: UNK
     Dates: start: 20121214, end: 20130215

REACTIONS (5)
  - Toxic epidermal necrolysis [Recovered/Resolved]
  - Renal abscess [Fatal]
  - Febrile neutropenia [Recovered/Resolved]
  - Rash [Recovered/Resolved]
  - Tumour lysis syndrome [Recovered/Resolved]
